FAERS Safety Report 22379503 (Version 2)
Quarter: 2025Q3

REPORT INFORMATION
  Report Type: Spontaneous
  Country: IN (occurrence: IN)
  Receive Date: 20230529
  Receipt Date: 20250703
  Transmission Date: 20251020
  Serious: Yes (Other)
  Sender: Steriscience PTE
  Company Number: IN-STERISCIENCE B.V.-2023-ST-001352

PATIENT

DRUGS (2)
  1. METOPROLOL [Interacting]
     Active Substance: METOPROLOL
     Indication: Product used for unknown indication
     Route: 065
  2. ISOSORBIDE DINITRATE [Interacting]
     Active Substance: ISOSORBIDE DINITRATE
     Indication: Product used for unknown indication
     Route: 065

REACTIONS (4)
  - Drug interaction [Unknown]
  - Dizziness [Unknown]
  - Bradycardia [Unknown]
  - Hypotension [Unknown]
